FAERS Safety Report 5165762-7 (Version None)
Quarter: 2006Q4

REPORT INFORMATION
  Report Type: 
  Country: None (occurrence: None)
  Receive Date: 20061128
  Receipt Date: 20061114
  Transmission Date: 20070319
  Serious: Yes (Hospitalization)
  Sender: FDA-Public Use
  Company Number: GXKR2006PL07316

PATIENT
  Age: 30 Year
  Sex: 0

DRUGS (4)
  1. NAPROXEN [Suspect]
     Dosage: ONE TABLET, ORAL
     Route: 048
  2. IBUPROFEN [Suspect]
     Dosage: ONE TABLET, ORAL
     Route: 048
  3. ASPIRIN [Suspect]
     Indication: ALLERGY TEST
     Dosage: 188 MG, ORAL
     Route: 048
  4. CELECOXIB [Suspect]
     Indication: ALLERGY TEST
     Dosage: 400 MG, UNKNOWN

REACTIONS (11)
  - ABDOMINAL DISCOMFORT [None]
  - ALLERGY TEST POSITIVE [None]
  - DRUG HYPERSENSITIVITY [None]
  - FLUSHING [None]
  - FORCED EXPIRATORY VOLUME DECREASED [None]
  - HEART RATE INCREASED [None]
  - HYPERSENSITIVITY [None]
  - NASAL DISORDER [None]
  - PULMONARY OEDEMA [None]
  - SHOCK [None]
  - THROAT IRRITATION [None]
